FAERS Safety Report 7668667-2 (Version None)
Quarter: 2011Q3

REPORT INFORMATION
  Report Type: 
  Country: None (occurrence: None)
  Receive Date: 20110808
  Receipt Date: 20110801
  Transmission Date: 20111222
  Serious: Yes (Other)
  Sender: FDA-Public Use
  Company Number: GB-PFIZER INC-2011147359

PATIENT
  Sex: Male

DRUGS (1)
  1. REFACTO [Suspect]
     Indication: HAEMOPHILIA

REACTIONS (2)
  - DRUG HALF-LIFE REDUCED [None]
  - HAEMORRHAGE [None]
